FAERS Safety Report 9168345 (Version 1)
Quarter: 2013Q1

REPORT INFORMATION
  Report Type: Spontaneous
  Country: IT (occurrence: None)
  Receive Date: 20130308
  Receipt Date: 20130308
  Transmission Date: 20140127
  Serious: Yes (Other)
  Sender: FDA-Public Use
  Company Number: AUR-APL-2013-01852

PATIENT
  Age: 69 Year
  Sex: Male

DRUGS (1)
  1. ATENOLOL (ATENOLOL) [Suspect]
     Indication: PRODUCT USED FOR UNKNOWN INDICATION
     Dosage: ( 1 D)
     Route: 048
     Dates: start: 20120128, end: 20130127

REACTIONS (2)
  - Presyncope [None]
  - Sinus bradycardia [None]
